FAERS Safety Report 25031383 (Version 1)
Quarter: 2025Q1

REPORT INFORMATION
  Report Type: Spontaneous
  Country: US (occurrence: US)
  Receive Date: 20250303
  Receipt Date: 20250303
  Transmission Date: 20250409
  Serious: Yes (Other)
  Sender: BAYER HEALTHCARE PHARMACEUTICALS INC.
  Company Number: US-BAYER-2025A026885

PATIENT
  Age: 53 Year
  Sex: Male

DRUGS (2)
  1. JIVI [Suspect]
     Active Substance: DAMOCTOCOG ALFA PEGOL
     Indication: Factor VIII deficiency
     Dosage: 5300 IU, TIW
     Route: 042
     Dates: start: 201312
  2. JIVI [Suspect]
     Active Substance: DAMOCTOCOG ALFA PEGOL
     Indication: Factor VIII deficiency
     Dosage: 5300 IU, TIW
     Route: 042
     Dates: start: 201312

REACTIONS (2)
  - Haemorrhage [None]
  - Animal scratch [None]

NARRATIVE: CASE EVENT DATE: 20250218
